FAERS Safety Report 8833313 (Version 1)
Quarter: 2012Q4

REPORT INFORMATION
  Report Type: 
  Country: US (occurrence: US)
  Receive Date: 20121010
  Receipt Date: 20121010
  Transmission Date: 20130627
  Serious: No
  Sender: FDA-Public Use
  Company Number: US-BAYER-2012-094539

PATIENT
  Age: 64 Year
  Sex: Male

DRUGS (4)
  1. AVELOX I.V. [Suspect]
     Indication: DIVERTICULITIS
     Route: 042
  2. LASIX [Concomitant]
  3. POTASSIUM [POTASSIUM] [Concomitant]
  4. ACTIQ [Concomitant]

REACTIONS (7)
  - Tendonitis [None]
  - Tendon pain [None]
  - Arthropathy [None]
  - Asthenia [None]
  - Tendonitis [None]
  - Arthropathy [None]
  - Pain [None]
